FAERS Safety Report 25601764 (Version 1)
Quarter: 2025Q3

REPORT INFORMATION
  Report Type: Report from Study
  Country: GB (occurrence: GB)
  Receive Date: 20250724
  Receipt Date: 20250724
  Transmission Date: 20251021
  Serious: Yes (Death)
  Sender: PFIZER
  Company Number: GB-PFIZER INC-202500146322

PATIENT
  Age: 49 Year
  Sex: Male

DRUGS (9)
  1. KETAMINE HYDROCHLORIDE [Interacting]
     Active Substance: KETAMINE HYDROCHLORIDE
     Indication: High risk sexual behaviour
  2. OXYBATE [Interacting]
     Active Substance: OXYBATE
     Indication: High risk sexual behaviour
  3. METHAMPHETAMINE [Interacting]
     Active Substance: METHAMPHETAMINE
     Indication: High risk sexual behaviour
  4. BENZOYLECGONINE [Interacting]
     Active Substance: BENZOYLECGONINE
     Indication: High risk sexual behaviour
  5. NORKETAMINE [Interacting]
     Active Substance: NORKETAMINE
     Indication: High risk sexual behaviour
  6. .DELTA.9-TETRAHYDROCANNABINOL\HERBALS [Interacting]
     Active Substance: .DELTA.9-TETRAHYDROCANNABINOL\HERBALS
     Indication: High risk sexual behaviour
  7. HERBALS\TETRAHYDROCANNABINOL UNSPECIFIED [Interacting]
     Active Substance: HERBALS\TETRAHYDROCANNABINOL UNSPECIFIED
     Indication: High risk sexual behaviour
  8. SILDENAFIL [Interacting]
     Active Substance: SILDENAFIL
     Indication: High risk sexual behaviour
  9. DIPHENHYDRAMINE [Interacting]
     Active Substance: DIPHENHYDRAMINE
     Indication: High risk sexual behaviour

REACTIONS (3)
  - Drug interaction [Fatal]
  - Substance use [Fatal]
  - Toxicity to various agents [Fatal]
